FAERS Safety Report 13649312 (Version 1)
Quarter: 2017Q2

REPORT INFORMATION
  Report Type: Spontaneous
  Country: CA (occurrence: CA)
  Receive Date: 20170613
  Receipt Date: 20170613
  Transmission Date: 20170830
  Serious: Yes (Disabling)
  Sender: FDA-Public Use
  Company Number: CA-TEVA-778017ACC

PATIENT
  Age: 34 Year
  Sex: Female

DRUGS (3)
  1. TEVA-QUETIAPINE XR [Suspect]
     Active Substance: QUETIAPINE
     Indication: DEPRESSION
     Dosage: 300 MILLIGRAM DAILY;
     Route: 048
  2. MOMETASONE FUROATE. [Concomitant]
     Active Substance: MOMETASONE FUROATE
  3. LAMOTRIGINE. [Concomitant]
     Active Substance: LAMOTRIGINE

REACTIONS (2)
  - Abasia [Recovered/Resolved]
  - Loss of personal independence in daily activities [Recovered/Resolved]
